FAERS Safety Report 4382042-8 (Version None)
Quarter: 2004Q2

REPORT INFORMATION
  Report Type: 
  Country: None (occurrence: None)
  Receive Date: 20040621
  Receipt Date: 20040322
  Transmission Date: 20050107
  Serious: Yes (Death, Hospitalization)
  Sender: FDA-Public Use
  Company Number: CH-MERCK-0405CHE00034

PATIENT
  Age: 75 Year
  Sex: Female
  Weight: 75 kg

DRUGS (4)
  1. ASPIRIN LYSINE [Concomitant]
     Indication: PROPHYLAXIS
     Route: 048
     Dates: start: 20000410, end: 20040307
  2. EZETIMIBE [Suspect]
     Indication: HYPERCHOLESTEROLAEMIA
     Route: 048
     Dates: start: 20030719, end: 20030824
  3. PRAVASTATIN SODIUM [Concomitant]
     Indication: HYPERCHOLESTEROLAEMIA
     Route: 048
     Dates: start: 20021005, end: 20040307
  4. VALSARTAN [Concomitant]
     Indication: HYPERTENSION
     Route: 048
     Dates: start: 20020413, end: 20040307

REACTIONS (2)
  - HEADACHE [None]
  - PANCREATIC CARCINOMA METASTATIC [None]
